FAERS Safety Report 6297774-4 (Version None)
Quarter: 2009Q3

REPORT INFORMATION
  Report Type: 
  Country: None (occurrence: None)
  Receive Date: 20090805
  Receipt Date: 20090730
  Transmission Date: 20100115
  Serious: Yes (Hospitalization)
  Sender: FDA-Public Use
  Company Number: US-ASTRAZENECA-2009SE06344

PATIENT
  Age: 20 Year
  Sex: Male
  Weight: 86.2 kg

DRUGS (2)
  1. SEROQUEL XR [Suspect]
     Route: 048
  2. CLONIPINE [Concomitant]
     Indication: SLEEP DISORDER

REACTIONS (3)
  - CONVULSION [None]
  - PSYCHOTIC DISORDER [None]
  - SOMNOLENCE [None]
